FAERS Safety Report 12390211 (Version 4)
Quarter: 2018Q4

REPORT INFORMATION
  Report Type: Spontaneous
  Country: US (occurrence: US)
  Receive Date: 20160520
  Receipt Date: 20181017
  Transmission Date: 20190204
  Serious: Yes (Other)
  Sender: FDA-Public Use
  Company Number: US-009507513-1605USA009029

PATIENT
  Sex: Female

DRUGS (1)
  1. IMPLANON [Suspect]
     Active Substance: ETONOGESTREL
     Indication: CONTRACEPTION
     Dosage: 68 MG, 1 ROD EVERY 3 YEARS, ONCE
     Route: 059
     Dates: start: 20120809, end: 20160527

REACTIONS (13)
  - Complication of device removal [Recovered/Resolved]
  - Anaemia [Unknown]
  - Keloid scar [Unknown]
  - Complication of device removal [Recovered/Resolved]
  - Surgery [Recovered/Resolved]
  - Complication of device removal [Recovered/Resolved]
  - Complication associated with device [Recovered/Resolved]
  - Complication of device removal [Recovered/Resolved]
  - Complication of device removal [Recovered/Resolved]
  - Incorrect product administration duration [Recovered/Resolved]
  - Hypertension [Unknown]
  - General anaesthesia [Recovered/Resolved]
  - Implant site pain [Unknown]

NARRATIVE: CASE EVENT DATE: 2013
